FAERS Safety Report 6314068-9 (Version None)
Quarter: 2009Q3

REPORT INFORMATION
  Report Type: 
  Country: None (occurrence: None)
  Receive Date: 20090814
  Receipt Date: 20090730
  Transmission Date: 20100115
  Serious: Yes (Hospitalization)
  Sender: FDA-Public Use
  Company Number: 1000007293

PATIENT
  Age: 19 Year
  Sex: Female

DRUGS (5)
  1. CARBAMAZEPINE [Suspect]
     Indication: BORDERLINE PERSONALITY DISORDER
     Dosage: 400 MG ; 800 MG
  2. CITALOPRAM [Concomitant]
  3. OCTANE ZUCLOPENTHIXOL [Concomitant]
  4. ZUCLOPENTHIXOL, DEPOT [Concomitant]
  5. DIANE 35 [Concomitant]

REACTIONS (15)
  - BLOOD AMYLASE INCREASED [None]
  - BLOOD CHLORIDE DECREASED [None]
  - C-REACTIVE PROTEIN INCREASED [None]
  - DISEASE RECURRENCE [None]
  - DYSPHORIA [None]
  - HALLUCINATION, AUDITORY [None]
  - HEADACHE [None]
  - HYPERSENSITIVITY [None]
  - PHARYNGEAL INFLAMMATION [None]
  - PHOTOPHOBIA [None]
  - PSYCHOMOTOR HYPERACTIVITY [None]
  - PYREXIA [None]
  - SELF-INJURIOUS IDEATION [None]
  - SUICIDAL IDEATION [None]
  - TOXIC SKIN ERUPTION [None]
